FAERS Safety Report 10255264 (Version 1)
Quarter: 2014Q2

REPORT INFORMATION
  Report Type: Spontaneous
  Country: FR (occurrence: FR)
  Receive Date: 20140624
  Receipt Date: 20140624
  Transmission Date: 20141212
  Serious: Yes (Hospitalization)
  Sender: FDA-Public Use
  Company Number: FR-SA-2014SA082292

PATIENT
  Age: 93 Year
  Sex: Female

DRUGS (3)
  1. STILNOX [Suspect]
     Indication: PRODUCT USED FOR UNKNOWN INDICATION
     Route: 048
  2. PLAVIX [Concomitant]
     Route: 065
  3. OMEPRAZOLE [Concomitant]
     Route: 065

REACTIONS (2)
  - Haematoma [Not Recovered/Not Resolved]
  - Fall [Not Recovered/Not Resolved]
